FAERS Safety Report 17161471 (Version 1)
Quarter: 2019Q4

REPORT INFORMATION
  Report Type: Spontaneous
  Country: SE (occurrence: SE)
  Receive Date: 20191216
  Receipt Date: 20191216
  Transmission Date: 20200122
  Serious: Yes (Hospitalization)
  Sender: FDA-Public Use
  Company Number: SE-TEVA-2019-SE-1151381

PATIENT
  Age: 41 Year
  Sex: Female

DRUGS (6)
  1. STESOLID [Suspect]
     Active Substance: DIAZEPAM
     Dosage: 35 MG
     Route: 048
     Dates: start: 20190726, end: 20190726
  2. PREGABALIN. [Suspect]
     Active Substance: PREGABALIN
     Dosage: 7P 225PREGABALIN
     Route: 048
     Dates: start: 20190726, end: 20190726
  3. LAMICTAL [Suspect]
     Active Substance: LAMOTRIGINE
     Dosage: LAMICTAL 3 ST 225MG
     Route: 048
     Dates: start: 20190726, end: 20190726
  4. LERGIGAN (PROMETHAZINE HYDROCHLORIDE) [Suspect]
     Active Substance: PROMETHAZINE HYDROCHLORIDE
     Dosage: 10X50 MG
     Route: 048
     Dates: start: 20190726
  5. IBUMETIN [Suspect]
     Active Substance: IBUPROFEN
     Route: 048
     Dates: start: 20190726, end: 20190726
  6. OLANZAPINE. [Suspect]
     Active Substance: OLANZAPINE
     Dosage: 70 MG
     Route: 048
     Dates: start: 20190726, end: 20190726

REACTIONS (5)
  - Mydriasis [Unknown]
  - Diplopia [Unknown]
  - Intentional overdose [Unknown]
  - Lethargy [Unknown]
  - Intentional self-injury [Unknown]

NARRATIVE: CASE EVENT DATE: 20190726
